FAERS Safety Report 12745849 (Version 2)
Quarter: 2020Q2

REPORT INFORMATION
  Report Type: Report from Study
  Country: US (occurrence: US)
  Receive Date: 20160915
  Receipt Date: 20200527
  Transmission Date: 20200713
  Serious: Yes (Death, Other)
  Sender: FDA-Public Use
  Company Number: US-CIPLA LTD.-2016US18316

PATIENT

DRUGS (1)
  1. EMTRICITABINE/TENOFOVIR [Suspect]
     Active Substance: EMTRICITABINE\TENOFOVIR
     Indication: PROPHYLAXIS AGAINST HIV INFECTION
     Dosage: 200 MG/300 MG, QD (ONCE DAILY)
     Route: 048

REACTIONS (1)
  - Pulmonary embolism [Fatal]
